FAERS Safety Report 10506954 (Version 2)
Quarter: 2014Q4

REPORT INFORMATION
  Report Type: Spontaneous
  Country: NL (occurrence: NL)
  Receive Date: 20141009
  Receipt Date: 20141009
  Transmission Date: 20150528
  Serious: Yes (Other)
  Sender: FDA-Public Use
  Company Number: NL-JNJFOC-20130204644

PATIENT
  Age: 7 Year
  Sex: Female

DRUGS (3)
  1. HALOPERIDOL. [Suspect]
     Active Substance: HALOPERIDOL
     Indication: DELIRIUM
     Dosage: (DAILY 0.003 MG/KG, 0.08 MG/KG)
     Route: 048
  2. HALOPERIDOL. [Suspect]
     Active Substance: HALOPERIDOL
     Indication: DELIRIUM
     Dosage: (DAILY 0.003 MG/KG, 0.08 MG/KG)
     Route: 048
  3. HALOPERIDOL. [Suspect]
     Active Substance: HALOPERIDOL
     Indication: DELIRIUM
     Dosage: (DAILY 0.003 MG/KG, 0.08 MG/KG)
     Route: 048

REACTIONS (4)
  - Tremor [Recovering/Resolving]
  - Dystonia [Recovering/Resolving]
  - Depressed level of consciousness [Recovering/Resolving]
  - Product use issue [Unknown]
